FAERS Safety Report 4894356-3 (Version None)
Quarter: 2006Q1

REPORT INFORMATION
  Report Type: 
  Country: None (occurrence: None)
  Receive Date: 20060127
  Receipt Date: 20060123
  Transmission Date: 20060701
  Serious: Yes (Death)
  Sender: FDA-Public Use
  Company Number: PHBS2006ES01192

PATIENT
  Age: 57 Year
  Sex: Female

DRUGS (7)
  1. ZOMETA [Suspect]
     Dosage: 4 MG
  2. MOTIVAN [Suspect]
     Dosage: 20 MG
     Route: 065
  3. OMEPRAZOLE [Suspect]
     Route: 065
  4. GABAPENTIN [Suspect]
     Route: 065
  5. DEXAMETHASONE TAB [Suspect]
     Route: 065
  6. DURAGESIC-100 [Suspect]
     Dosage: MATRIX 25 MCG PATCHES
     Route: 065
  7. TARCEVA [Suspect]
     Dosage: 100 MG/D
     Route: 048
     Dates: start: 20050801

REACTIONS (1)
  - CARDIAC DEATH [None]
